FAERS Safety Report 6687472-7 (Version None)
Quarter: 2010Q2

REPORT INFORMATION
  Report Type: 
  Country: None (occurrence: None)
  Receive Date: 20100416
  Receipt Date: 20100416
  Transmission Date: 20101027
  Serious: Yes (Hospitalization)
  Sender: FDA-Public Use
  Company Number: None

PATIENT
  Age: 62 Year
  Sex: Male
  Weight: 99.5 kg

DRUGS (1)
  1. ERTAPENEM [Suspect]
     Indication: OSTEOMYELITIS
     Dosage: 1 GM EVERY DAY IV
     Route: 042
     Dates: start: 20100312, end: 20100315

REACTIONS (2)
  - CONFUSIONAL STATE [None]
  - HALLUCINATION [None]
